FAERS Safety Report 23188171 (Version 7)
Quarter: 2024Q3

REPORT INFORMATION
  Report Type: Spontaneous
  Country: US (occurrence: US)
  Receive Date: 20231115
  Receipt Date: 20240904
  Transmission Date: 20241017
  Serious: Yes (Hospitalization, Other)
  Sender: PFIZER
  Company Number: US-PFIZER INC-PV202300182220

PATIENT
  Age: 77 Year
  Sex: Female
  Weight: 79.365 kg

DRUGS (7)
  1. IBRANCE [Suspect]
     Active Substance: PALBOCICLIB
     Indication: Breast cancer female
     Dosage: 125 MG
  2. IBRANCE [Suspect]
     Active Substance: PALBOCICLIB
     Dosage: 100 MG, DAILY
     Route: 048
     Dates: start: 20230917, end: 20231007
  3. IBRANCE [Suspect]
     Active Substance: PALBOCICLIB
     Dosage: 21/28 DAYS
     Route: 048
  4. IBRANCE [Suspect]
     Active Substance: PALBOCICLIB
     Dosage: 75 MG
  5. IBRANCE [Suspect]
     Active Substance: PALBOCICLIB
     Dosage: 21 DAYS OF 28 DAYS
  6. IBRANCE [Suspect]
     Active Substance: PALBOCICLIB
     Dosage: 1 TAB 3 DAYS PER WEEK
  7. IBRANCE [Suspect]
     Active Substance: PALBOCICLIB
     Dosage: 1 TAB ORALLY 3 DAYS PER WEEK FOR 3 WEEKS THEN TAKE ONE WEEK OFF
     Route: 048

REACTIONS (10)
  - Immune system disorder [Unknown]
  - White blood cell count decreased [Unknown]
  - Alopecia [Not Recovered/Not Resolved]
  - Stomatitis [Recovered/Resolved]
  - Decreased appetite [Recovered/Resolved]
  - Neutropenia [Recovered/Resolved]
  - Fatigue [Recovered/Resolved]
  - Nasopharyngitis [Recovered/Resolved]
  - Diarrhoea [Recovered/Resolved]
  - Off label use [Unknown]

NARRATIVE: CASE EVENT DATE: 20230917
